FAERS Safety Report 7913581-8 (Version None)
Quarter: 2011Q4

REPORT INFORMATION
  Report Type: 
  Country: None (occurrence: None)
  Receive Date: 20111115
  Receipt Date: 20111111
  Transmission Date: 20120403
  Serious: No
  Sender: FDA-Public Use
  Company Number: US-PFIZER INC-2011258408

PATIENT
  Sex: Female
  Weight: 76.644 kg

DRUGS (10)
  1. KEPPRA [Concomitant]
     Indication: CONVULSION
     Dosage: 1000 MG, 1X/DAY
     Route: 048
  2. VITAMIN B COMPLEX CAP [Concomitant]
     Dosage: UNK
  3. VITAMIN D [Concomitant]
     Dosage: UNK
  4. CALCIUM [Concomitant]
     Dosage: UNK
  5. FLAXSEED OIL [Concomitant]
     Dosage: UNK
  6. ARIMIDEX [Concomitant]
     Indication: BREAST CANCER FEMALE
     Dosage: 1 MG, 1X/DAY
     Route: 048
  7. FISH OIL [Concomitant]
     Dosage: UNK
  8. XALKORI [Suspect]
     Indication: LUNG NEOPLASM MALIGNANT
     Dosage: 250 MG, 2X/DAY
     Route: 048
     Dates: start: 20110928
  9. MIRALAX [Concomitant]
     Indication: GASTROINTESTINAL DISORDER
     Dosage: 17 G, 1X/DAY
     Route: 048
  10. DOCUSATE [Concomitant]
     Indication: GASTROINTESTINAL DISORDER
     Dosage: UNK

REACTIONS (3)
  - RASH [None]
  - DRY SKIN [None]
  - PRURITUS [None]
